FAERS Safety Report 4583331-4 (Version None)
Quarter: 2005Q1

REPORT INFORMATION
  Report Type: 
  Country: None (occurrence: None)
  Receive Date: 20050125
  Receipt Date: 20041014
  Transmission Date: 20050727
  Serious: No
  Sender: FDA-Public Use
  Company Number: USA040156576

PATIENT
  Age: 67 Year
  Sex: Female
  Weight: 53 kg

DRUGS (6)
  1. FORTEO [Suspect]
     Dosage: 20 UG/1 DAY
     Dates: start: 20031001, end: 20040918
  2. TUMS (CALCIUM CARBONATE) [Concomitant]
  3. VITAMIN E [Concomitant]
  4. CALCIUM GLUCONATE [Concomitant]
  5. VITAMIN D [Concomitant]
  6. ACIPHEX [Concomitant]

REACTIONS (7)
  - ALOPECIA [None]
  - BLOOD PARATHYROID HORMONE INCREASED [None]
  - DRUG INEFFECTIVE [None]
  - FATIGUE [None]
  - MUSCLE SPASMS [None]
  - PRURITUS [None]
  - SCIATICA [None]
